FAERS Safety Report 24836773 (Version 1)
Quarter: 2025Q1

REPORT INFORMATION
  Report Type: Report from Study
  Country: US (occurrence: US)
  Receive Date: 20250113
  Receipt Date: 20250113
  Transmission Date: 20250409
  Serious: Yes (Hospitalization, Other)
  Sender: JAZZ
  Company Number: US-JAZZ PHARMACEUTICALS-2024-US-025020

PATIENT
  Age: 71 Year
  Sex: Female

DRUGS (21)
  1. XYREM [Suspect]
     Active Substance: SODIUM OXYBATE
     Indication: Narcolepsy
  2. XYREM [Suspect]
     Active Substance: SODIUM OXYBATE
     Indication: Cataplexy
  3. XYREM [Suspect]
     Active Substance: SODIUM OXYBATE
     Indication: Somnolence
  4. CYMBALTA [Concomitant]
     Active Substance: DULOXETINE HYDROCHLORIDE
     Dates: start: 20150919
  5. CAFERGOT [Concomitant]
     Active Substance: CAFFEINE\ERGOTAMINE TARTRATE
     Indication: Migraine
     Dates: start: 20150919
  6. TRIAMCINOLONE [Concomitant]
     Active Substance: TRIAMCINOLONE
     Indication: Eczema
     Dates: start: 20150919
  7. LOSARTAN AND HYDROCHLOROTHIAZIDE [Concomitant]
     Active Substance: HYDROCHLOROTHIAZIDE\LOSARTAN POTASSIUM
     Dates: start: 20150919
  8. BUTORPHANOL [Concomitant]
     Active Substance: BUTORPHANOL
     Dates: start: 20130121
  9. METOPROLOL SUCCINATE [Concomitant]
     Active Substance: METOPROLOL SUCCINATE
     Dates: start: 20150919
  10. LEVOTHYROXINE [Concomitant]
     Active Substance: LEVOTHYROXINE
     Dates: start: 20150919
  11. PROMETHAZINE [Concomitant]
     Active Substance: PROMETHAZINE HYDROCHLORIDE
     Dates: start: 20150919
  12. XARELTO [Concomitant]
     Active Substance: RIVAROXABAN
     Dates: start: 20240901
  13. TYLENOL [Concomitant]
     Active Substance: ACETAMINOPHEN
     Dates: start: 20240901
  14. SPIRONOLACTONE [Concomitant]
     Active Substance: SPIRONOLACTONE
  15. AMLODIPINE BESYLATE [Concomitant]
     Active Substance: AMLODIPINE BESYLATE
  16. ASPIRIN [Concomitant]
     Active Substance: ASPIRIN
  17. ATORVASTATIN CALCIUM [Concomitant]
     Active Substance: ATORVASTATIN CALCIUM
  18. EVISTA [Concomitant]
     Active Substance: RALOXIFENE HYDROCHLORIDE
  19. ASPIRIN\BUTALBITAL\CAFFEINE\PHENACETIN [Concomitant]
     Active Substance: ASPIRIN\BUTALBITAL\CAFFEINE\PHENACETIN
     Indication: Headache
  20. DEXILANT [Concomitant]
     Active Substance: DEXLANSOPRAZOLE
     Indication: Gastrooesophageal reflux disease
     Dates: start: 20240901
  21. PANTOPRAZOLE [Concomitant]
     Active Substance: PANTOPRAZOLE
     Indication: Gastrooesophageal reflux disease

REACTIONS (8)
  - Arrhythmia [Unknown]
  - Cerebrovascular accident [Unknown]
  - COVID-19 [Unknown]
  - Blood pressure increased [Recovering/Resolving]
  - Gastrooesophageal reflux disease [Unknown]
  - Product administration interrupted [Unknown]
  - Intentional product use issue [Unknown]
  - Intentional dose omission [Unknown]

NARRATIVE: CASE EVENT DATE: 20240901
